FAERS Safety Report 7773295-4 (Version None)
Quarter: 2011Q3

REPORT INFORMATION
  Report Type: 
  Country: None (occurrence: None)
  Receive Date: 20110922
  Receipt Date: 20110915
  Transmission Date: 20111222
  Serious: Yes (Hospitalization)
  Sender: FDA-Public Use
  Company Number: SE-ASTRAZENECA-2011SE55554

PATIENT
  Age: 88 Year
  Sex: Female

DRUGS (11)
  1. METOPROLOL [Concomitant]
  2. ASPIRIN [Concomitant]
  3. LOSATRIX [Concomitant]
  4. VENTOLIN [Concomitant]
  5. IMDUR [Suspect]
     Indication: ESSENTIAL HYPERTENSION
     Route: 048
     Dates: end: 20110811
  6. POTASSIUM CHLORIDE [Concomitant]
  7. SIMVASTATIN [Concomitant]
  8. GLYTRIN [Concomitant]
  9. B-KOMBIN FORTE N [Concomitant]
  10. FLUTIDE DISKUS [Concomitant]
  11. PLENDIL [Suspect]
     Indication: ESSENTIAL HYPERTENSION
     Route: 048
     Dates: end: 20110811

REACTIONS (1)
  - ORTHOSTATIC HYPOTENSION [None]
